FAERS Safety Report 5073113-1 (Version None)
Quarter: 2006Q3

REPORT INFORMATION
  Report Type: 
  Country: None (occurrence: None)
  Receive Date: 20060802
  Receipt Date: 20060721
  Transmission Date: 20061208
  Serious: Yes (Hospitalization)
  Sender: FDA-Public Use
  Company Number: CHPA2006US07157

PATIENT
  Age: 72 Year
  Sex: Female
  Weight: 65.8 kg

DRUGS (8)
  1. NICOTINE [Suspect]
     Indication: SMOKING CESSATION THERAPY
     Dosage: 21 MG, QD, TRANSDERMAL
     Route: 062
     Dates: start: 20060602, end: 20060714
  2. NICOTINE [Suspect]
     Indication: SMOKING CESSATION THERAPY
     Dosage: 21 MG, QD, TRANSDERMAL
     Route: 062
     Dates: start: 20060718, end: 20060718
  3. PROZAC 9FLUOXETINE HYDROCHLORIDE) [Concomitant]
  4. RISPERDAL [Concomitant]
  5. CLONOPIN [Concomitant]
  6. RITALIN [Concomitant]
  7. ROZEREM [Concomitant]
  8. PRILOSEC [Concomitant]

REACTIONS (4)
  - CONDITION AGGRAVATED [None]
  - DEPRESSION [None]
  - FEELING JITTERY [None]
  - INAPPROPRIATE SCHEDULE OF DRUG ADMINISTRATION [None]
